FAERS Safety Report 17025705 (Version 1)
Quarter: 2019Q4

REPORT INFORMATION
  Report Type: Spontaneous
  Country: MY (occurrence: MY)
  Receive Date: 20191113
  Receipt Date: 20191113
  Transmission Date: 20200122
  Serious: Yes (Other)
  Sender: FDA-Public Use
  Company Number: MY-REGENERON PHARMACEUTICALS, INC.-2019-65633

PATIENT

DRUGS (8)
  1. EYLEA [Suspect]
     Active Substance: AFLIBERCEPT
     Dosage: UNK, ONCE
     Dates: start: 20170421, end: 20170421
  2. EYLEA [Suspect]
     Active Substance: AFLIBERCEPT
     Dosage: UNK, ONCE
     Dates: start: 20170522, end: 20170522
  3. EYLEA [Suspect]
     Active Substance: AFLIBERCEPT
     Dosage: UNK, ONCE
     Dates: start: 20180507, end: 20180507
  4. EYLEA [Suspect]
     Active Substance: AFLIBERCEPT
     Dosage: UNK, ONCE
     Dates: start: 20180711, end: 20180711
  5. EYLEA [Suspect]
     Active Substance: AFLIBERCEPT
     Dosage: UNK, ONCE
     Dates: start: 20181029, end: 20181029
  6. EYLEA [Suspect]
     Active Substance: AFLIBERCEPT
     Indication: NEOVASCULAR AGE-RELATED MACULAR DEGENERATION
     Dosage: 2 MGINJ FOR 3 4WEEKLY LOADING DOSE
     Route: 031
     Dates: start: 20150306
  7. EYLEA [Suspect]
     Active Substance: AFLIBERCEPT
     Dosage: UNK UNK, ONCE
     Dates: start: 20170814, end: 20170814
  8. EYLEA [Suspect]
     Active Substance: AFLIBERCEPT
     Dosage: UNK, ONCE
     Dates: start: 20180328, end: 20180328

REACTIONS (5)
  - Subretinal fibrosis [Unknown]
  - Vision blurred [Unknown]
  - Labelled drug-drug interaction medication error [Not Recovered/Not Resolved]
  - Treatment noncompliance [Unknown]
  - Visual acuity reduced [Unknown]

NARRATIVE: CASE EVENT DATE: 20150306
